FAERS Safety Report 6051578-6 (Version None)
Quarter: 2009Q1

REPORT INFORMATION
  Report Type: 
  Country: None (occurrence: None)
  Receive Date: 20090126
  Receipt Date: 20090121
  Transmission Date: 20090719
  Serious: Yes (Hospitalization)
  Sender: FDA-Public Use
  Company Number: B0555580A

PATIENT
  Age: 64 Year
  Sex: Male

DRUGS (7)
  1. TOPOTECAN [Suspect]
     Route: 048
     Dates: start: 20081110, end: 20081205
  2. METHYLPREDNISOLONE [Concomitant]
     Indication: PROPHYLAXIS
     Dosage: 16MG PER DAY
     Route: 048
     Dates: start: 20081221
  3. ISOPTIN [Concomitant]
     Indication: HYPERTENSION
     Dates: start: 20070601
  4. CORDARONE [Concomitant]
     Route: 048
     Dates: start: 20070601
  5. ADEXOR [Concomitant]
     Indication: HYPERTENSION
     Route: 048
     Dates: start: 20070601
  6. CORVATON RETARD [Concomitant]
     Indication: HYPERTENSION
     Route: 048
     Dates: start: 20070601
  7. ENOXAPARIN SODIUM [Concomitant]
     Indication: ATRIAL FIBRILLATION
     Route: 058
     Dates: start: 20070601

REACTIONS (8)
  - C-REACTIVE PROTEIN INCREASED [None]
  - INFLAMMATION [None]
  - IRON DEFICIENCY [None]
  - LEUKOPENIA [None]
  - PNEUMONIA [None]
  - PYREXIA [None]
  - SPUTUM DISCOLOURED [None]
  - THROMBOCYTOPENIA [None]
